FAERS Safety Report 11098235 (Version 1)
Quarter: 2015Q2

REPORT INFORMATION
  Report Type: Report from Study
  Country: CA (occurrence: CA)
  Receive Date: 20150507
  Receipt Date: 20150507
  Transmission Date: 20150821
  Serious: Yes (Other)
  Sender: FDA-Public Use
  Company Number: CA-INTERMUNE, INC.-201504IM014959

PATIENT
  Age: 69 Year
  Sex: Male
  Weight: 93 kg

DRUGS (13)
  1. ZOPICLONE [Concomitant]
     Active Substance: ZOPICLONE
  2. PANTOLOC [Concomitant]
     Active Substance: PANTOPRAZOLE SODIUM
  3. LEUTIN [Concomitant]
  4. VITAMIN D3 [Concomitant]
     Active Substance: CHOLECALCIFEROL
  5. ESBRIET [Suspect]
     Active Substance: PIRFENIDONE
     Dosage: 2403 MG
     Route: 048
  6. NAC [Concomitant]
  7. INDOMETHACIN. [Concomitant]
     Active Substance: INDOMETHACIN
  8. ESBRIET [Suspect]
     Active Substance: PIRFENIDONE
     Indication: FIBROSIS
     Route: 048
     Dates: start: 20141223
  9. SIMVASTATIN. [Concomitant]
     Active Substance: SIMVASTATIN
  10. ASA [Concomitant]
     Active Substance: ASPIRIN
  11. VITAMIN C [Concomitant]
     Active Substance: ASCORBIC ACID
  12. LASIX [Concomitant]
     Active Substance: FUROSEMIDE
  13. GLUCOSAMINE [Concomitant]
     Active Substance: GLUCOSAMINE

REACTIONS (1)
  - Burns third degree [Not Recovered/Not Resolved]

NARRATIVE: CASE EVENT DATE: 20150407
